FAERS Safety Report 22019791 (Version 1)
Quarter: 2023Q1

REPORT INFORMATION
  Report Type: Spontaneous
  Country: US (occurrence: US)
  Receive Date: 20230222
  Receipt Date: 20230222
  Transmission Date: 20230417
  Serious: Yes (Other)
  Sender: FDA-Public Use
  Company Number: US-SUN PHARMACEUTICAL INDUSTRIES LTD-2023R1-380159

PATIENT
  Age: 71 Year
  Sex: Male

DRUGS (3)
  1. PREDNISONE [Suspect]
     Active Substance: PREDNISONE
     Indication: Gastroenteritis
     Dosage: 10 MILLIGRAM, DAILY
     Route: 048
     Dates: start: 202108
  2. PREDNISONE [Suspect]
     Active Substance: PREDNISONE
     Indication: Dermatitis
  3. PREDNISONE [Suspect]
     Active Substance: PREDNISONE
     Indication: Arthritis

REACTIONS (1)
  - Neutrophilia [Unknown]
